FAERS Safety Report 19245179 (Version 1)
Quarter: 2021Q2

REPORT INFORMATION
  Report Type: Spontaneous
  Country: BR (occurrence: BR)
  Receive Date: 20210512
  Receipt Date: 20210512
  Transmission Date: 20210717
  Serious: Yes (Other)
  Sender: FDA-Public Use
  Company Number: BR-NOVOPROD-810136

PATIENT
  Age: 69 Year
  Sex: Female
  Weight: 75.2 kg

DRUGS (8)
  1. THIOCTIC ACID [Concomitant]
     Active Substance: .ALPHA.-LIPOIC ACID
     Dosage: 600 1 TIME A DAY
     Route: 065
  2. INSULATARD HM [Suspect]
     Active Substance: INSULIN HUMAN
     Dosage: INCREASED INSULIN DOSES
     Route: 065
  3. INSULATARD HM [Suspect]
     Active Substance: INSULIN HUMAN
     Indication: DIABETES MELLITUS
     Dosage: 44 IU, QD (24 UNITS IN THE MORNING, 10 UNITS AT LUNCH AND 10 UNITS BEFORE BED)
     Route: 065
  4. DULOXETINE HYDROCHLORIDE. [Concomitant]
     Active Substance: DULOXETINE HYDROCHLORIDE
     Dosage: 60 MG, QD
     Route: 065
  5. DAPAGLIFLOZIN. [Concomitant]
     Active Substance: DAPAGLIFLOZIN
     Dosage: 10 MG, QD
     Route: 065
  6. HYDROCHLOROTHIAZIDE;OLMESARTAN [Concomitant]
     Dosage: 20 MG + 12.5 MG
     Route: 065
  7. METFORMIN;VILDAGLIPTIN [Concomitant]
     Active Substance: METFORMIN\VILDAGLIPTIN
     Dosage: 50 MG + 1000 MG
     Route: 065
  8. SIMVASTATIN. [Concomitant]
     Active Substance: SIMVASTATIN
     Dosage: 20 MG, QD
     Route: 065

REACTIONS (5)
  - Gliosis [Unknown]
  - Hypoglycaemia [Unknown]
  - Weight increased [Unknown]
  - Cataract [Unknown]
  - Diabetes mellitus inadequate control [Unknown]

NARRATIVE: CASE EVENT DATE: 2020
